FAERS Safety Report 26192919 (Version 1)
Quarter: 2025Q4

REPORT INFORMATION
  Report Type: Spontaneous
  Country: GB (occurrence: GB)
  Receive Date: 20251223
  Receipt Date: 20251223
  Transmission Date: 20260118
  Serious: Yes (Hospitalization)
  Sender: TAKEDA
  Company Number: GB-TAKEDA-2025TUS116878

PATIENT
  Age: 32 Year
  Sex: Male

DRUGS (2)
  1. VORTIOXETINE [Suspect]
     Active Substance: VORTIOXETINE
     Indication: Intentional self-injury
     Dosage: 1260 MILLIGRAM
  2. DIAZEPAM [Suspect]
     Active Substance: DIAZEPAM
     Indication: Intentional self-injury
     Dosage: 350 MILLIGRAM

REACTIONS (2)
  - Alanine aminotransferase increased [Unknown]
  - Overdose [Unknown]
